FAERS Safety Report 6877401-5 (Version None)
Quarter: 2010Q3

REPORT INFORMATION
  Report Type: 
  Country: None (occurrence: None)
  Receive Date: 20100716
  Receipt Date: 20100707
  Transmission Date: 20110219
  Serious: Yes (Hospitalization)
  Sender: FDA-Public Use
  Company Number: WSDF_00635

PATIENT
  Sex: Female
  Weight: 85 kg

DRUGS (3)
  1. WINRHO SDF LIQUID [Suspect]
     Indication: IDIOPATHIC THROMBOCYTOPENIC PURPURA
     Dosage: (50.59 ?G, KG TOTAL INTRAVENOUS), (INTRAVENOUS)
     Route: 042
     Dates: start: 20070328, end: 20070328
  2. WINRHO SDF LIQUID [Suspect]
     Indication: IDIOPATHIC THROMBOCYTOPENIC PURPURA
     Dosage: (50.59 ?G, KG TOTAL INTRAVENOUS), (INTRAVENOUS)
     Route: 042
     Dates: start: 20070328, end: 20070328
  3. WINRHO SDF LIQUID [Suspect]

REACTIONS (9)
  - ABDOMINAL PAIN UPPER [None]
  - LUNG INFILTRATION [None]
  - MUSCULOSKELETAL PAIN [None]
  - OVARIAN CANCER [None]
  - PLEURITIC PAIN [None]
  - PNEUMONITIS [None]
  - SPLENIC HAEMATOMA [None]
  - SPLENIC HAEMORRHAGE [None]
  - SPLENOMEGALY [None]
